FAERS Safety Report 8035557-5 (Version None)
Quarter: 2012Q1

REPORT INFORMATION
  Report Type: 
  Country: None (occurrence: None)
  Receive Date: 20120111
  Receipt Date: 20120102
  Transmission Date: 20120608
  Serious: Yes (Hospitalization)
  Sender: FDA-Public Use
  Company Number: FR-JNJFOC-20120100728

PATIENT
  Age: 81 Year
  Sex: Female

DRUGS (10)
  1. MORPHINE [Suspect]
     Indication: PRODUCT USED FOR UNKNOWN INDICATION
     Route: 065
     Dates: start: 20110712, end: 20110716
  2. MORPHINE SULFATE [Suspect]
     Indication: PRODUCT USED FOR UNKNOWN INDICATION
     Route: 065
     Dates: start: 20110711, end: 20110712
  3. OXAZEPAM [Suspect]
     Indication: PRODUCT USED FOR UNKNOWN INDICATION
     Route: 065
     Dates: start: 20110708, end: 20110716
  4. BISOPROLOL FUMARATE [Concomitant]
     Indication: HYPERTENSION
     Route: 065
  5. DURAGESIC-100 [Suspect]
     Indication: PRODUCT USED FOR UNKNOWN INDICATION
     Route: 065
     Dates: start: 20110708, end: 20110716
  6. DURAGESIC-100 [Suspect]
     Route: 048
     Dates: start: 20110708, end: 20110716
  7. ACETAMINOPHEN [Concomitant]
     Indication: BACK PAIN
     Route: 065
  8. VALSARTAN [Concomitant]
     Indication: HYPERTENSION
     Route: 065
  9. FENTANYL CITRATE [Suspect]
     Indication: PRODUCT USED FOR UNKNOWN INDICATION
     Route: 065
     Dates: start: 20110708, end: 20110711
  10. LOVENOX [Concomitant]
     Indication: PRODUCT USED FOR UNKNOWN INDICATION
     Route: 065
     Dates: start: 20110708, end: 20110716

REACTIONS (6)
  - EOSINOPHILIA [None]
  - ECZEMA [None]
  - RENAL FAILURE [None]
  - URTICARIA [None]
  - INCORRECT ROUTE OF DRUG ADMINISTRATION [None]
  - DRUG PRESCRIBING ERROR [None]
